FAERS Safety Report 21081968 (Version 1)
Quarter: 2022Q3

REPORT INFORMATION
  Report Type: Spontaneous
  Country: US (occurrence: None)
  Receive Date: 20220714
  Receipt Date: 20220714
  Transmission Date: 20221027
  Serious: Yes (Hospitalization)
  Sender: FDA-Public Use
  Company Number: None

PATIENT
  Sex: Male

DRUGS (17)
  1. TACROLIMUS [Suspect]
     Active Substance: TACROLIMUS
     Indication: Renal transplant
     Dosage: FREQUENCY : EVERY 12 HOURS;?TAKE 2 CAPSULES BY MOUTH EVERY 12 HOURS (TOTAL DOSE 2 MG EVERY 12 HOURS)
     Route: 048
     Dates: start: 20170728
  2. ACID REDUCER TAB [Concomitant]
  3. ATORVASTATIN [Concomitant]
     Active Substance: ATORVASTATIN
  4. BABY ASPIRIN CHW [Concomitant]
  5. CULTURELLE [Concomitant]
     Active Substance: LACTOBACILLUS RHAMNOSUS
  6. FLOMAX CAP [Concomitant]
  7. GABAPENTIN [Concomitant]
     Active Substance: GABAPENTIN
  8. KP VITAMIN D [Concomitant]
  9. LIPITOR TAB [Concomitant]
  10. LOPERAMIDE CAP [Concomitant]
  11. MAGNESIUM TAB [Concomitant]
  12. MULTIVITAMIN CAP [Concomitant]
  13. NADOLOL TAB [Concomitant]
  14. PREDNISONE [Concomitant]
     Active Substance: PREDNISONE
  15. RANITIDINE TAB [Concomitant]
  16. SPIRIVA [Concomitant]
     Active Substance: TIOTROPIUM BROMIDE MONOHYDRATE
  17. ST JOSEPH AS CHW [Concomitant]

REACTIONS (2)
  - Blood potassium decreased [None]
  - Nonspecific reaction [None]
